FAERS Safety Report 18313263 (Version 1)
Quarter: 2020Q3

REPORT INFORMATION
  Report Type: Spontaneous
  Country: FR (occurrence: FR)
  Receive Date: 20200925
  Receipt Date: 20200925
  Transmission Date: 20201103
  Serious: Yes (Hospitalization)
  Sender: FDA-Public Use
  Company Number: FR-CADILA HEALTHCARE LIMITED-FR-ZYDUS-023657

PATIENT

DRUGS (7)
  1. PANTOPRAZOLE [Suspect]
     Active Substance: PANTOPRAZOLE
     Indication: OESOPHAGITIS
     Dosage: 40 MILLIGRAM,(INTERVAL :1 DAYS)
     Route: 048
     Dates: start: 201710, end: 20180323
  2. LANSOPRAZOLE. [Suspect]
     Active Substance: LANSOPRAZOLE
     Indication: OESOPHAGITIS
     Dosage: 15 MILLIGRAM,(INTERVAL :1 DAYS)
     Route: 048
     Dates: start: 20180324
  3. SURBRONC [Suspect]
     Active Substance: AMBROXOL HYDROCHLORIDE
     Indication: INCREASED BRONCHIAL SECRETION
     Dosage: 60 MILLIGRAM,(INTERVAL :1 DAYS)
     Route: 048
     Dates: start: 20180206, end: 20180215
  4. AMOXICILLIN. [Suspect]
     Active Substance: AMOXICILLIN
     Indication: INFECTION
     Dosage: 3 GRAM,(INTERVAL :1 DAYS)
     Route: 048
     Dates: start: 20180206, end: 20180215
  5. LEVOTHYROX [Suspect]
     Active Substance: LEVOTHYROXINE
     Indication: HYPOTHYROIDISM
     Dosage: 87.5 MICROGRAM,(INTERVAL :1 DAYS)
     Route: 048
  6. LOVENOX [Suspect]
     Active Substance: ENOXAPARIN SODIUM
     Indication: THROMBOSIS PROPHYLAXIS
     Dosage: 4000 INTERNATIONAL UNIT,(INTERVAL :1 DAYS)
     Route: 058
     Dates: start: 201710
  7. FLECAINIDE ACETATE. [Suspect]
     Active Substance: FLECAINIDE ACETATE
     Indication: ARRHYTHMIA
     Dosage: 100 MILLIGRAM,(INTERVAL :1 DAYS)
     Route: 048

REACTIONS (1)
  - Hepatitis cholestatic [Not Recovered/Not Resolved]

NARRATIVE: CASE EVENT DATE: 201802
